FAERS Safety Report 10410031 (Version 1)
Quarter: 2014Q3

REPORT INFORMATION
  Report Type: Spontaneous
  Country: CZ (occurrence: CZ)
  Receive Date: 20140826
  Receipt Date: 20140826
  Transmission Date: 20150326
  Serious: Yes (Hospitalization)
  Sender: FDA-Public Use
  Company Number: PHHY2014CZ106155

PATIENT
  Age: 58 Year
  Sex: Male

DRUGS (1)
  1. SIMVASTATIN. [Suspect]
     Active Substance: SIMVASTATIN
     Indication: HYPERCHOLESTEROLAEMIA
     Dosage: 20 MG/DAY FOR 3 YEARS

REACTIONS (13)
  - Polymyositis [Unknown]
  - Myalgia [Recovered/Resolved]
  - Muscular weakness [Recovered/Resolved]
  - Malaise [Unknown]
  - Blood creatine phosphokinase increased [Unknown]
  - Muscle necrosis [Recovered/Resolved]
  - Muscle contractions involuntary [Recovered/Resolved]
  - Myoglobin blood increased [Recovered/Resolved]
  - Dyspnoea exertional [Not Recovered/Not Resolved]
  - Joint stiffness [Recovered/Resolved]
  - Arthralgia [Recovered/Resolved]
  - Interstitial lung disease [Recovering/Resolving]
  - Pyrexia [Unknown]
